FAERS Safety Report 17353909 (Version 1)
Quarter: 2020Q1

REPORT INFORMATION
  Report Type: Spontaneous
  Country: US (occurrence: US)
  Receive Date: 20200131
  Receipt Date: 20200131
  Transmission Date: 20200409
  Serious: No
  Sender: FDA-Public Use
  Company Number: US-TEVA-2020-US-1175665

PATIENT
  Sex: Female

DRUGS (1)
  1. RISEDRONATE TEVA [Suspect]
     Active Substance: RISEDRONATE SODIUM
     Indication: OSTEOPOROSIS
     Dates: start: 2019

REACTIONS (1)
  - Oesophageal irritation [Recovered/Resolved]

NARRATIVE: CASE EVENT DATE: 20200122
